FAERS Safety Report 5910476-6 (Version None)
Quarter: 2008Q4

REPORT INFORMATION
  Report Type: 
  Country: None (occurrence: None)
  Receive Date: 20081006
  Receipt Date: 20081006
  Transmission Date: 20090506
  Serious: Yes (Hospitalization)
  Sender: FDA-Public Use
  Company Number: None

PATIENT
  Sex: Female
  Weight: 42.6381 kg

DRUGS (6)
  1. PEMETREXED [Suspect]
     Indication: HEAD AND NECK CANCER
     Dosage: 500MG/M2, Q3W, IV
     Route: 042
  2. BEVACIZUMAB [Suspect]
     Indication: HEAD AND NECK CANCER
     Dosage: 15 MG/KG, Q3W, IV
     Route: 042
  3. OXYCODONE HCL [Concomitant]
  4. FOLIC ACID [Concomitant]
  5. DEXAMETHASONE [Concomitant]
  6. OXYCONTIN [Concomitant]

REACTIONS (2)
  - DEHYDRATION [None]
  - WEIGHT DECREASED [None]
